FAERS Safety Report 6599377-0 (Version None)
Quarter: 2010Q1

REPORT INFORMATION
  Report Type: 
  Country: None (occurrence: None)
  Receive Date: 20100216
  Receipt Date: 20100208
  Transmission Date: 20100710
  Serious: Yes (Life-Threatening, Other)
  Sender: FDA-Public Use
  Company Number: WAES 0911DEU00048

PATIENT
  Age: 57 Year
  Sex: Male

DRUGS (5)
  1. ISENTRESS [Suspect]
     Indication: HIV INFECTION
     Dosage: 1 DOSE/DAILY PO
     Route: 048
     Dates: start: 20090122
  2. TENOFOVIR DISOPROXIL FUMARATE [Suspect]
     Indication: HIV INFECTION
     Dosage: 300 MG/DAILY PO
     Route: 048
     Dates: start: 20060120
  3. DARUNAVIR [Concomitant]
  4. LOPERAMIDE HCL [Concomitant]
  5. RITONAVIR [Concomitant]

REACTIONS (2)
  - CONVULSION [None]
  - MUSCLE SPASMS [None]
